FAERS Safety Report 5598033-5 (Version None)
Quarter: 2008Q1

REPORT INFORMATION
  Report Type: 
  Country: None (occurrence: None)
  Receive Date: 20080122
  Receipt Date: 20080108
  Transmission Date: 20080703
  Serious: Yes (Other)
  Sender: FDA-Public Use
  Company Number: US-ELI_LILLY_AND_COMPANY-US200801001411

PATIENT
  Sex: Female

DRUGS (1)
  1. FORTEO [Suspect]

REACTIONS (7)
  - ANXIETY [None]
  - CONFUSIONAL STATE [None]
  - CONVULSION [None]
  - DIZZINESS [None]
  - EMOTIONAL DISTRESS [None]
  - FEAR [None]
  - HEADACHE [None]
